FAERS Safety Report 25235700 (Version 5)
Quarter: 2025Q2

REPORT INFORMATION
  Report Type: Spontaneous
  Country: US (occurrence: US)
  Receive Date: 20250424
  Receipt Date: 20250627
  Transmission Date: 20250716
  Serious: Yes (Other)
  Sender: PFIZER
  Company Number: US-PFIZER INC-PV202400106297

PATIENT
  Age: 78 Year
  Sex: Female

DRUGS (5)
  1. TUKYSA [Suspect]
     Active Substance: TUCATINIB
     Indication: Breast cancer metastatic
     Dosage: 300 MG, TWICE DAILY
  2. TUKYSA [Suspect]
     Active Substance: TUCATINIB
     Indication: Intracranial mass
     Dosage: 150 MG, ONE TABLET TWICE A DAY
     Route: 048
  3. HERCEPTIN [Concomitant]
     Active Substance: TRASTUZUMAB
  4. ARIMIDEX [Concomitant]
     Active Substance: ANASTROZOLE
  5. PERJETA [Concomitant]
     Active Substance: PERTUZUMAB

REACTIONS (7)
  - Neuropathy peripheral [Unknown]
  - Off label use [Unknown]
  - Product use issue [Unknown]
  - Pain [Unknown]
  - Lymphoedema [Not Recovered/Not Resolved]
  - Arthritis [Unknown]
  - Dry skin [Unknown]
